FAERS Safety Report 9819853 (Version 1)
Quarter: 2013Q4

REPORT INFORMATION
  Report Type: Spontaneous
  Country: US (occurrence: None)
  Receive Date: 20131223
  Receipt Date: 20131223
  Transmission Date: 20140711
  Serious: No
  Sender: FDA-Public Use
  Company Number: 219382

PATIENT
  Sex: Male

DRUGS (1)
  1. PICATO [Suspect]
     Indication: ACTINIC KERATOSIS
     Dosage: (1 IN 1 D), TOPICAL
     Route: 061
     Dates: start: 20121015, end: 20121017

REACTIONS (11)
  - Application site erythema [None]
  - Application site irritation [None]
  - Application site exfoliation [None]
  - Application site reaction [None]
  - Lip dry [None]
  - Oral pain [None]
  - Skin exfoliation [None]
  - Rash macular [None]
  - Hyperaesthesia [None]
  - Drug administered at inappropriate site [None]
  - Pain [None]
